FAERS Safety Report 7055574-1 (Version None)
Quarter: 2010Q4

REPORT INFORMATION
  Report Type: 
  Country: None (occurrence: None)
  Receive Date: 20101021
  Receipt Date: 20101015
  Transmission Date: 20110411
  Serious: Yes (Other)
  Sender: FDA-Public Use
  Company Number: PHHY2010CA65337

PATIENT
  Sex: Female

DRUGS (1)
  1. SANDOSTATIN LAR [Suspect]
     Indication: HEPATIC CANCER METASTATIC
     Dosage: 20 MG EVERY 04 WEEKS
     Route: 030
     Dates: start: 20100623

REACTIONS (4)
  - COUGH [None]
  - HEART RATE INCREASED [None]
  - NASAL CONGESTION [None]
  - NASOPHARYNGITIS [None]
